FAERS Safety Report 22085004 (Version 1)
Quarter: 2023Q1

REPORT INFORMATION
  Report Type: Spontaneous
  Country: US (occurrence: None)
  Receive Date: 20230309
  Receipt Date: 20230309
  Transmission Date: 20230418
  Serious: Yes (Hospitalization)
  Sender: FDA-Public Use
  Company Number: None

PATIENT
  Sex: Female

DRUGS (3)
  1. ICATIBANT ACETATE [Suspect]
     Active Substance: ICATIBANT ACETATE
     Indication: Complement deficiency disease
     Dosage: FREQUENCY : AS NEEDED;?
     Route: 058
     Dates: start: 202209
  2. TAKHZYRO [Suspect]
     Active Substance: LANADELUMAB-FLYO
  3. RUCONEST [Suspect]
     Active Substance: RUCONEST

REACTIONS (7)
  - Therapy interrupted [None]
  - Condition aggravated [None]
  - Oedema peripheral [None]
  - Oedema genital [None]
  - Swelling face [None]
  - Pharyngeal swelling [None]
  - Insurance issue [None]
